FAERS Safety Report 9304256 (Version 1)
Quarter: 2013Q2

REPORT INFORMATION
  Report Type: Other
  Country: FR (occurrence: FR)
  Receive Date: 20130522
  Receipt Date: 20130522
  Transmission Date: 20140414
  Serious: Yes (Hospitalization)
  Sender: FDA-Public Use
  Company Number: FR-NICOBRDEVP-2013-08723

PATIENT
  Sex: 0

DRUGS (6)
  1. AMLODIPINE [Suspect]
     Indication: PULMONARY EMBOLISM
     Dosage: 10 MG, DAILY
     Route: 048
     Dates: start: 20130306
  2. XARELTO [Suspect]
     Indication: PULMONARY EMBOLISM
     Dosage: 15 MG, UNK
     Route: 048
     Dates: start: 20130305, end: 20130315
  3. BI-PROFENID [Suspect]
     Indication: TRACHEITIS
     Dosage: 100 MG, DAILY
     Route: 048
     Dates: start: 20130305, end: 20130312
  4. AMOXICILLINE/ACIDE CLAVULANIQ. SANDOZ [Suspect]
     Indication: TRACHEITIS
     Dosage: 1 DF, TID
     Route: 048
     Dates: start: 20130305, end: 20130312
  5. INEXIUM /01479302/ [Suspect]
     Indication: PRODUCT USED FOR UNKNOWN INDICATION
     Dosage: 20 MG, DAILY
     Route: 048
     Dates: start: 20130305, end: 20130312
  6. DOLIPRANE [Suspect]
     Indication: PAIN
     Dosage: UNK
     Route: 048
     Dates: start: 20120305

REACTIONS (3)
  - Haemothorax [Recovering/Resolving]
  - Pleural effusion [Recovering/Resolving]
  - Chest pain [Recovered/Resolved]
